FAERS Safety Report 7266438-2 (Version None)
Quarter: 2011Q1

REPORT INFORMATION
  Report Type: 
  Country: None (occurrence: None)
  Receive Date: 20110131
  Receipt Date: 20110117
  Transmission Date: 20110831
  Serious: Yes (Hospitalization)
  Sender: FDA-Public Use
  Company Number: GB-MYLANLABS-2011S1001090

PATIENT
  Age: 62 Year
  Sex: Female

DRUGS (2)
  1. CIPROFLOXACIN [Suspect]
     Indication: INFECTION
     Dates: start: 20101223, end: 20101223
  2. ATENOLOL [Concomitant]
     Indication: CARDIAC MURMUR
     Dates: start: 20050101

REACTIONS (7)
  - ORAL PAIN [None]
  - SWELLING FACE [None]
  - GINGIVAL PAIN [None]
  - EAR CONGESTION [None]
  - URTICARIA [None]
  - PHARYNGEAL OEDEMA [None]
  - NASAL CONGESTION [None]
